FAERS Safety Report 21129113 (Version 1)
Quarter: 2022Q3

REPORT INFORMATION
  Report Type: Spontaneous
  Country: JP (occurrence: JP)
  Receive Date: 20220725
  Receipt Date: 20220725
  Transmission Date: 20221026
  Serious: Yes (Death, Hospitalization)
  Sender: FDA-Public Use
  Company Number: JP-DSJP-DSJ-2022-116403

PATIENT
  Age: 9 Decade
  Sex: Male

DRUGS (2)
  1. EDOXABAN TOSYLATE [Suspect]
     Active Substance: EDOXABAN TOSYLATE
     Indication: Atrial fibrillation
     Dosage: 15 MG, QD
     Route: 048
  2. PRASUGREL HYDROCHLORIDE [Suspect]
     Active Substance: PRASUGREL HYDROCHLORIDE
     Indication: Percutaneous coronary intervention
     Dosage: 3.75 MG, QD
     Route: 048

REACTIONS (3)
  - Pulmonary alveolar haemorrhage [Recovered/Resolved]
  - Myocardial infarction [Fatal]
  - Cardiac valve disease [Unknown]
